FAERS Safety Report 5778024-1 (Version None)
Quarter: 2008Q2

REPORT INFORMATION
  Report Type: 
  Country: None (occurrence: None)
  Receive Date: 20080619
  Receipt Date: 20080610
  Transmission Date: 20081010
  Serious: Yes (Death)
  Sender: FDA-Public Use
  Company Number: US-JNJFOC-20080404697

PATIENT
  Sex: Female
  Weight: 79.38 kg

DRUGS (3)
  1. FENTANYL TRANSDERMAL SYSTEM [Suspect]
     Indication: PAIN
     Route: 062
  2. FENTANYL TRANSDERMAL SYSTEM [Suspect]
     Indication: PAIN
     Route: 062
  3. RILUTEK [Concomitant]
     Indication: AMYOTROPHIC LATERAL SCLEROSIS
     Dosage: ^50^
     Route: 048

REACTIONS (5)
  - AMYOTROPHIC LATERAL SCLEROSIS [None]
  - APPLICATION SITE IRRITATION [None]
  - DEPRESSED LEVEL OF CONSCIOUSNESS [None]
  - HYPERSOMNIA [None]
  - MALAISE [None]
